FAERS Safety Report 10285018 (Version 1)
Quarter: 2014Q3

REPORT INFORMATION
  Report Type: Spontaneous
  Country: US (occurrence: US)
  Receive Date: 20140708
  Receipt Date: 20140708
  Transmission Date: 20150326
  Serious: No
  Sender: FDA-Public Use
  Company Number: US-ASTRAZENECA-2014SE46647

PATIENT
  Sex: Female

DRUGS (1)
  1. BUDESONIDE. [Suspect]
     Active Substance: BUDESONIDE
     Indication: SINUSITIS
     Route: 045
     Dates: start: 201406, end: 201406

REACTIONS (5)
  - Dyspnoea [Recovered/Resolved]
  - Off label use [Unknown]
  - Nasal discomfort [Recovered/Resolved]
  - Exposure during pregnancy [Unknown]
  - Rhinitis [Recovered/Resolved]

NARRATIVE: CASE EVENT DATE: 201406
